FAERS Safety Report 24140442 (Version 1)
Quarter: 2024Q3

REPORT INFORMATION
  Report Type: Spontaneous
  Country: US (occurrence: US)
  Receive Date: 20240726
  Receipt Date: 20240726
  Transmission Date: 20241017
  Serious: No
  Sender: APOTEX
  Company Number: US-APOTEX-2024AP001046

PATIENT
  Age: 29 Year
  Sex: Female

DRUGS (8)
  1. GEMFIBROZIL [Suspect]
     Active Substance: GEMFIBROZIL
     Indication: Hypertriglyceridaemia
     Dosage: UNK
     Route: 065
  2. GEMFIBROZIL [Suspect]
     Active Substance: GEMFIBROZIL
     Dosage: 600 MILLIGRAM, BID
     Route: 065
  3. LOVAZA [Concomitant]
     Active Substance: OMEGA-3-ACID ETHYL ESTERS
     Indication: Hypertriglyceridaemia
     Dosage: 2 GRAM, BID
     Route: 065
  4. LOVAZA [Concomitant]
     Active Substance: OMEGA-3-ACID ETHYL ESTERS
     Dosage: 4 GRAM, QD
     Route: 065
  5. LOVAZA [Concomitant]
     Active Substance: OMEGA-3-ACID ETHYL ESTERS
     Dosage: 2 GRAM, TID
     Route: 065
  6. LOVAZA [Concomitant]
     Active Substance: OMEGA-3-ACID ETHYL ESTERS
     Dosage: 8 GRAM, QD
     Route: 065
  7. INSULIN NOS [Concomitant]
     Active Substance: INSULIN NOS
     Indication: Hypertriglyceridaemia
     Dosage: UNK (INSULIN DRIP)
     Route: 065
  8. INSULIN NOS [Concomitant]
     Active Substance: INSULIN NOS
     Indication: Gestational diabetes

REACTIONS (2)
  - Maternal exposure during pregnancy [Unknown]
  - Treatment noncompliance [Unknown]
